FAERS Safety Report 4950987-3 (Version None)
Quarter: 2006Q1

REPORT INFORMATION
  Report Type: 
  Country: None (occurrence: None)
  Receive Date: 20060315
  Receipt Date: 20060228
  Transmission Date: 20060701
  Serious: Yes (Hospitalization)
  Sender: FDA-Public Use
  Company Number: EWC051046612

PATIENT
  Age: 66 Year
  Sex: Female
  Weight: 79 kg

DRUGS (3)
  1. F1D-MC-HGKA OLANZAPINE MONOHYDRATE DEPOT (OLANZAPINE) TABLET [Suspect]
     Indication: SCHIZOPHRENIA
     Dosage: 15 MG DAILY (1/D) ORAL
     Route: 048
     Dates: start: 20050922, end: 20051012
  2. ACETAMINOPHEN [Concomitant]
  3. DIAZEPAM [Concomitant]

REACTIONS (2)
  - PULMONARY EMBOLISM [None]
  - RESPIRATORY FAILURE [None]
